FAERS Safety Report 7700265-4 (Version None)
Quarter: 2011Q3

REPORT INFORMATION
  Report Type: 
  Country: None (occurrence: None)
  Receive Date: 20110822
  Receipt Date: 20110812
  Transmission Date: 20111222
  Serious: Yes (Hospitalization)
  Sender: FDA-Public Use
  Company Number: CA-JNJFOC-20110800887

PATIENT
  Age: 82 Year
  Sex: Male
  Weight: 78 kg

DRUGS (19)
  1. ACETYLSALICYLIC ACID SRT [Suspect]
     Indication: CORONARY ARTERY DISEASE
     Route: 048
     Dates: start: 20110302, end: 20110310
  2. METOPROLOL SUCCINATE [Concomitant]
     Route: 065
  3. PAROXETINE HCL [Concomitant]
     Route: 065
  4. CELEBREX [Suspect]
     Route: 048
  5. TRAZODONE HCL [Concomitant]
     Route: 065
  6. VITAMIN B-12 [Concomitant]
     Route: 065
  7. ACETYLSALICYLIC ACID SRT [Suspect]
     Route: 048
     Dates: start: 20110315
  8. HYDROMORPHONE HCL [Concomitant]
     Route: 065
  9. PRAVASTATIN SODIUM [Concomitant]
     Route: 048
  10. ACETYLSALICYLIC ACID SRT [Suspect]
     Indication: THROMBOSIS PROPHYLAXIS
     Route: 048
     Dates: start: 20110315
  11. ACETYLSALICYLIC ACID SRT [Suspect]
     Route: 048
     Dates: start: 20110302, end: 20110310
  12. ARICEPT [Concomitant]
     Route: 065
  13. CEFAZOLIN [Concomitant]
     Route: 042
  14. VITAMIN D [Concomitant]
     Route: 048
  15. METFORMIN HYDROCHLORIDE [Concomitant]
     Route: 065
  16. XARELTO [Suspect]
     Route: 048
     Dates: start: 20110315
  17. CELEBREX [Suspect]
     Indication: ILL-DEFINED DISORDER
     Route: 048
  18. XARELTO [Suspect]
     Indication: THROMBOSIS PROPHYLAXIS
     Route: 048
     Dates: start: 20110302, end: 20110310
  19. AMLODIPINE [Concomitant]
     Route: 065

REACTIONS (2)
  - GASTRITIS [None]
  - DUODENAL ULCER [None]
